FAERS Safety Report 11484781 (Version 1)
Quarter: 2015Q3

REPORT INFORMATION
  Report Type: Spontaneous
  Country: US (occurrence: US)
  Receive Date: 20150903
  Receipt Date: 20150903
  Transmission Date: 20151125
  Serious: No
  Sender: FDA-Public Use
  Company Number: US-ELI_LILLY_AND_COMPANY-US201208007662

PATIENT
  Age: 43 Year
  Sex: Male

DRUGS (2)
  1. CYMBALTA [Suspect]
     Active Substance: DULOXETINE HYDROCHLORIDE
     Indication: DEPRESSION
     Dosage: 60 MG, QD
     Dates: start: 20120814
  2. RIBAVIRIN. [Concomitant]
     Active Substance: RIBAVIRIN
     Dosage: UNK

REACTIONS (6)
  - Depressed mood [Unknown]
  - Feeling abnormal [Unknown]
  - Dyskinesia [Unknown]
  - Muscle twitching [Unknown]
  - Arthralgia [Unknown]
  - Staring [Unknown]
